FAERS Safety Report 8950077 (Version 1)
Quarter: 2012Q4

REPORT INFORMATION
  Report Type: 
  Country: US (occurrence: US)
  Receive Date: 20121205
  Receipt Date: 20121205
  Transmission Date: 20130627
  Serious: No
  Sender: FDA-Public Use
  Company Number: US-ASTELLAS-2012US006938

PATIENT
  Age: 78 None
  Sex: Female

DRUGS (2)
  1. TARCEVA [Suspect]
     Indication: NON-SMALL CELL LUNG CANCER RECURRENT
     Dosage: 100 mg, UID/QD
     Route: 048
     Dates: start: 20120815
  2. RETIN-A [Concomitant]
     Indication: PRODUCT USED FOR UNKNOWN INDICATION
     Dosage: UNK
     Route: 061

REACTIONS (6)
  - Incorrect dose administered [Unknown]
  - Headache [Unknown]
  - Acne pustular [Not Recovered/Not Resolved]
  - Fatigue [Unknown]
  - Hirsutism [Unknown]
  - Madarosis [Unknown]
